FAERS Safety Report 12437157 (Version 1)
Quarter: 2016Q2

REPORT INFORMATION
  Report Type: Spontaneous
  Country: JP (occurrence: JP)
  Receive Date: 20160606
  Receipt Date: 20160606
  Transmission Date: 20160815
  Serious: Yes (Other)
  Sender: FDA-Public Use
  Company Number: JP-TEVA-664261ISR

PATIENT
  Age: 26 Year
  Sex: Female

DRUGS (23)
  1. ASPARAGINASE [Suspect]
     Active Substance: ASPARAGINASE
     Dosage: 6,000 U/M2 DAYS 1, 3, 5, 8, 10, 12; REINDUCTION THERAPY
     Route: 065
  2. PREDNISOLONE. [Suspect]
     Active Substance: PREDNISOLONE
     Indication: ACUTE LYMPHOCYTIC LEUKAEMIA
     Dosage: 60MG/M2 DAYS1-7 AND 40MG/M2 DAY DAYS 15-28; INDUCTION THERAPY
     Route: 065
  3. CYTARABINE. [Suspect]
     Active Substance: CYTARABINE
     Indication: ACUTE LYMPHOCYTIC LEUKAEMIA
     Dosage: 75MG/M2 DAYS 1-6, 8-13; CONSOLIDATION AND RECONSOLIDATION THERAPY
     Route: 065
  4. PIRARUBICIN [Suspect]
     Active Substance: PIRARUBICIN
     Dosage: 25MG/M2 DAYS 8; MAINTENANCE THERAPY
     Route: 065
  5. CYCLOPHOSPHAMIDE. [Suspect]
     Active Substance: CYCLOPHOSPHAMIDE
     Dosage: 750MG/M2 DAYS 1,8; CONSOLIDATION AND RECONSOLIDATION THERAPY
     Route: 065
  6. METHOTREXATE [Suspect]
     Active Substance: METHOTREXATE
     Dosage: 150MG/M2 DAYS 1, 15, 29; MAINTENANCE THERAPY
     Route: 065
  7. PIRARUBICIN [Suspect]
     Active Substance: PIRARUBICIN
     Indication: ACUTE LYMPHOCYTIC LEUKAEMIA
     Dosage: 25 MG/M2 DAYS 8, 9; INDUCTION THERAPY
     Route: 065
  8. PIRARUBICIN [Suspect]
     Active Substance: PIRARUBICIN
     Dosage: 25MG/M2 DAYS 1, 8; REINDUCTION THERAPY
     Route: 065
  9. CYCLOPHOSPHAMIDE. [Suspect]
     Active Substance: CYCLOPHOSPHAMIDE
     Indication: ACUTE LYMPHOCYTIC LEUKAEMIA
     Dosage: 1200 MG/M2 DAY 10; INDUCTION THERAPY
     Route: 065
  10. ASPARAGINASE [Suspect]
     Active Substance: ASPARAGINASE
     Dosage: 10,000 U/M2 DAYS 1, 8, 1512; MAINTENANCE THERAPY
     Route: 065
  11. PREDNISOLONE. [Suspect]
     Active Substance: PREDNISOLONE
     Dosage: 40 MG/M2 DAY 1-14; REINDUCTION THERAPY
     Route: 065
  12. METHOTREXATE [Suspect]
     Active Substance: METHOTREXATE
     Indication: ACUTE LYMPHOCYTIC LEUKAEMIA
     Dosage: 3G/M2 DAYS 1, 8; SANCTUARY THERAPY
     Route: 065
  13. LEUPLIN [Suspect]
     Active Substance: LEUPROLIDE ACETATE
     Route: 058
  14. PIRARUBICIN [Suspect]
     Active Substance: PIRARUBICIN
     Dosage: 25MG/M2 DAYS 1,2; CONSOLIDATION AND RECONSOLIDATION THERAPY
     Route: 065
  15. VINCRISTINE [Suspect]
     Active Substance: VINCRISTINE
     Indication: ACUTE LYMPHOCYTIC LEUKAEMIA
     Dosage: 1.5 MG/M2 DAYS 8, 15, 22, 29; INDUCTION THERAPY
     Route: 065
  16. VINCRISTINE [Suspect]
     Active Substance: VINCRISTINE
     Dosage: 1.5MG/M2 DAYS 1, 8, 15; REINDUCTION AND MAINTENANCE THERAPY
     Route: 065
  17. PREDNISOLONE. [Suspect]
     Active Substance: PREDNISOLONE
     Dosage: 40 MG/M2 DAYS 1-14; MAINTENANCE THERAPY
     Route: 065
  18. MERCAPTOPURINE. [Suspect]
     Active Substance: MERCAPTOPURINE
     Dosage: 50MG/M2 DAYS 1-28; MAINTENANCE THERAPY
     Route: 065
  19. CYCLOPHOSPHAMIDE. [Suspect]
     Active Substance: CYCLOPHOSPHAMIDE
     Dosage: 750 MG/M2 DAYS 1, 8; CONSOLIDATION AND RECONSOLIDATION THERAPY
     Route: 065
  20. CYCLOPHOSPHAMIDE. [Suspect]
     Active Substance: CYCLOPHOSPHAMIDE
     Dosage: 600MG/M2 DAY 8; MAINTENANCE THERAPY
     Route: 065
  21. ASPARAGINASE [Suspect]
     Active Substance: ASPARAGINASE
     Indication: ACUTE LYMPHOCYTIC LEUKAEMIA
     Dosage: 6,000 U/M2 DAYS 15,17,19,21,23,25,27,29; INDUCTION THERAPY
     Route: 065
  22. DEXAMETHASONE. [Suspect]
     Active Substance: DEXAMETHASONE
     Indication: ACUTE LYMPHOCYTIC LEUKAEMIA
     Dosage: 10 MG/M2 DAYS 8-14; INDUCTION THERAPY
     Route: 065
  23. MERCAPTOPURINE. [Suspect]
     Active Substance: MERCAPTOPURINE
     Indication: ACUTE LYMPHOCYTIC LEUKAEMIA
     Dosage: 50MG/M2 DAYS 1-14; CONSOLIDATION AND RECONSOLIDATION THERAPY
     Route: 065

REACTIONS (4)
  - Stenosis [Recovered/Resolved]
  - Amenorrhoea [Recovered/Resolved]
  - Abdominal pain [Unknown]
  - Haematocolpos [Recovered/Resolved]
